FAERS Safety Report 7711997-6 (Version None)
Quarter: 2011Q3

REPORT INFORMATION
  Report Type: 
  Country: None (occurrence: None)
  Receive Date: 20110826
  Receipt Date: 20110822
  Transmission Date: 20111222
  Serious: Yes (Other)
  Sender: FDA-Public Use
  Company Number: US-JNJFOC-20110705818

PATIENT
  Sex: Male
  Weight: 84.82 kg

DRUGS (3)
  1. REMICADE [Suspect]
     Indication: RHEUMATOID ARTHRITIS
     Dosage: DOSE REPORTED AS ^400^
     Route: 042
     Dates: start: 20110125
  2. REMICADE [Suspect]
     Dosage: DOSE REPORTED AS ^400^
     Route: 042
     Dates: start: 20110322, end: 20110322
  3. REMICADE [Suspect]
     Dosage: DOSE REPORTED AS ^400^
     Route: 042

REACTIONS (2)
  - BLOOD PRESSURE INCREASED [None]
  - HEMIPARESIS [None]
